FAERS Safety Report 18181872 (Version 1)
Quarter: 2020Q3

REPORT INFORMATION
  Report Type: Spontaneous
  Country: RU (occurrence: RU)
  Receive Date: 20200821
  Receipt Date: 20200821
  Transmission Date: 20201103
  Serious: Yes (Other)
  Sender: FDA-Public Use
  Company Number: RU-ASTRAZENECA-2020SF04499

PATIENT
  Age: 53 Year
  Sex: Female

DRUGS (10)
  1. EUTHYROX [Concomitant]
     Active Substance: LEVOTHYROXINE SODIUM
  2. TORASEMIDE [Concomitant]
     Active Substance: TORSEMIDE
  3. RIVAROXABAN [Concomitant]
     Active Substance: RIVAROXABAN
  4. COMPLEX VITAMIN D AND CALCIUM [Concomitant]
  5. OMEPRAZOLE. [Concomitant]
     Active Substance: OMEPRAZOLE
  6. METOPROLOL. [Concomitant]
     Active Substance: METOPROLOL
  7. CURCUMIN SOLGAR [Concomitant]
  8. DENOSUMAB [Concomitant]
     Active Substance: DENOSUMAB
  9. TAGRISSO [Suspect]
     Active Substance: OSIMERTINIB
     Indication: NON-SMALL CELL LUNG CANCER
     Route: 048
     Dates: start: 20200407
  10. BICYCLOL [Concomitant]
     Active Substance: BICYCLOL

REACTIONS (3)
  - Drug ineffective [Unknown]
  - Lymphadenopathy mediastinal [Unknown]
  - Metastases to peritoneum [Unknown]
